FAERS Safety Report 17008400 (Version 1)
Quarter: 2019Q4

REPORT INFORMATION
  Report Type: Spontaneous
  Country: GB (occurrence: GB)
  Receive Date: 20191108
  Receipt Date: 20191108
  Transmission Date: 20200122
  Serious: Yes (Hospitalization, Other)
  Sender: FDA-Public Use
  Company Number: GB-ACCORD-160081

PATIENT
  Age: 68 Year
  Sex: Female

DRUGS (12)
  1. ADIZEM [Concomitant]
     Active Substance: DILTIAZEM HYDROCHLORIDE
  2. LANSOPRAZOLE. [Concomitant]
     Active Substance: LANSOPRAZOLE
  3. IRBESARTAN. [Concomitant]
     Active Substance: IRBESARTAN
  4. HYDROXYCHLOROQUINE [Concomitant]
     Active Substance: HYDROXYCHLOROQUINE
  5. ATORVASTATIN [Concomitant]
     Active Substance: ATORVASTATIN
  6. ADCAL-D3 [Concomitant]
     Active Substance: CALCIUM CARBONATE\CHOLECALCIFEROL
     Dosage: 1500MG/400IU
  7. QUININE [Concomitant]
     Active Substance: QUININE
  8. FOLIC ACID. [Concomitant]
     Active Substance: FOLIC ACID
  9. RANITIDINE. [Concomitant]
     Active Substance: RANITIDINE
  10. ACETYLSALICYLIC ACID [Concomitant]
     Active Substance: ASPIRIN
  11. METHOTREXATE. [Suspect]
     Active Substance: METHOTREXATE
     Indication: SCLERODERMA
     Dosage: FRIDAYS
     Route: 048
     Dates: start: 1999, end: 20191009
  12. CODEINE [Concomitant]
     Active Substance: CODEINE

REACTIONS (3)
  - Abdominal pain upper [Unknown]
  - Pancreatitis [Recovered/Resolved]
  - Vomiting [Unknown]

NARRATIVE: CASE EVENT DATE: 20191003
